FAERS Safety Report 8124664-4 (Version None)
Quarter: 2012Q1

REPORT INFORMATION
  Report Type: 
  Country: None (occurrence: None)
  Receive Date: 20120209
  Receipt Date: 20120209
  Transmission Date: 20120608
  Serious: Yes (Other)
  Sender: FDA-Public Use
  Company Number: None

PATIENT
  Age: 33 Year
  Sex: Female
  Weight: 100.69 kg

DRUGS (1)
  1. CYMBALTA [Suspect]
     Indication: DEPRESSION
     Dosage: 60.0 MG
     Route: 048
     Dates: start: 20091215, end: 20120124

REACTIONS (7)
  - ARTHRALGIA [None]
  - PARAESTHESIA [None]
  - NAUSEA [None]
  - HEADACHE [None]
  - DRUG WITHDRAWAL SYNDROME [None]
  - ANGER [None]
  - MYALGIA [None]
